FAERS Safety Report 4877588-X (Version None)
Quarter: 2006Q1

REPORT INFORMATION
  Report Type: 
  Country: None (occurrence: None)
  Receive Date: 20060111
  Receipt Date: 20051012
  Transmission Date: 20060701
  Serious: Yes (Hospitalization)
  Sender: FDA-Public Use
  Company Number: DE-GLAXOSMITHKLINE-D0047712A

PATIENT
  Age: 14 Year
  Sex: Female
  Weight: 48 kg

DRUGS (4)
  1. LAMICTAL [Suspect]
     Indication: PETIT MAL EPILEPSY
     Dosage: 50MG TWICE PER DAY
     Route: 048
     Dates: start: 20050101, end: 20051001
  2. ETHOSUXIMIDE [Concomitant]
     Indication: EPILEPSY
     Dosage: 1TAB TWICE PER DAY
     Route: 048
     Dates: start: 20020101, end: 20051101
  3. ORFIRIL LONG [Concomitant]
     Indication: EPILEPSY
     Dosage: 300MG TWICE PER DAY
     Route: 065
     Dates: start: 20020101, end: 20041201
  4. ORFIRIL LONG [Concomitant]
     Dosage: 1500MG PER DAY
     Route: 065
     Dates: start: 20051101

REACTIONS (3)
  - MACROGLOSSIA [None]
  - PETIT MAL EPILEPSY [None]
  - URINARY TRACT INFECTION [None]
